FAERS Safety Report 6345691-3 (Version None)
Quarter: 2009Q3

REPORT INFORMATION
  Report Type: 
  Country: None (occurrence: None)
  Receive Date: 20090909
  Receipt Date: 20090826
  Transmission Date: 20100115
  Serious: Yes (Other)
  Sender: FDA-Public Use
  Company Number: US-PFIZER INC-2009260494

PATIENT
  Sex: Male

DRUGS (3)
  1. DILANTIN-125 [Suspect]
     Indication: HEAD INJURY
  2. LEXAPRO [Concomitant]
  3. ABILIFY [Concomitant]

REACTIONS (4)
  - BLINDNESS [None]
  - GAIT DISTURBANCE [None]
  - MOBILITY DECREASED [None]
  - MUSCULAR WEAKNESS [None]
